FAERS Safety Report 19773302 (Version 1)
Quarter: 2021Q3

REPORT INFORMATION
  Report Type: Spontaneous
  Country: US (occurrence: US)
  Receive Date: 20210901
  Receipt Date: 20210901
  Transmission Date: 20211014
  Serious: No
  Sender: FDA-Public Use
  Company Number: US-TEVA-2021-US-1946498

PATIENT
  Age: 69 Year
  Sex: Male

DRUGS (2)
  1. TESTOSTERONE TEVA [Suspect]
     Active Substance: TESTOSTERONE
     Dosage: DOSE INCREASED TO 100 MG
     Route: 061
  2. TESTOSTERONE TEVA [Suspect]
     Active Substance: TESTOSTERONE
     Indication: PRODUCT USED FOR UNKNOWN INDICATION
     Dosage: DOSE: 50 MG
     Route: 061

REACTIONS (1)
  - Blood testosterone decreased [Unknown]
